FAERS Safety Report 15854515 (Version 1)
Quarter: 2019Q1

REPORT INFORMATION
  Report Type: Spontaneous
  Country: US (occurrence: US)
  Receive Date: 20190122
  Receipt Date: 20190122
  Transmission Date: 20190417
  Serious: Yes (Other)
  Sender: FDA-Public Use
  Company Number: None

PATIENT
  Age: 63 Year
  Sex: Female

DRUGS (16)
  1. ALPRAZOLAM 0.5 MG TAB [Concomitant]
  2. GABAPENTIN 300MG CAP [Concomitant]
     Active Substance: GABAPENTIN
  3. AMIODARONE 200 MG TAB [Concomitant]
  4. SILDENAFIL 20MG TAB [Suspect]
     Active Substance: SILDENAFIL
     Indication: PULMONARY ARTERIAL HYPERTENSION
     Route: 048
  5. FOLIC ACID 1000 MCG [Concomitant]
  6. DICLOFENAC 50MG TAB [Concomitant]
  7. KLOR-CON 20MEQ PAK [Concomitant]
  8. METOPROLOL TARTRATE 25MG TABLET [Concomitant]
     Active Substance: METOPROLOL TARTRATE
  9. DILTIAZEM 30MG TAB [Concomitant]
  10. PAROXETINE 10MG TAB [Concomitant]
  11. SPIRONOLACTONE 25MG TAB [Concomitant]
  12. PRADAXA 150MG CAP [Concomitant]
  13. PANTOPRAZOLE 40MG TAB [Concomitant]
  14. FUROSEMIDE 40MG TAB [Concomitant]
  15. CHLOROTHIAZIDE 500 MG TAB [Concomitant]
  16. ATORVASTATIN 40MG TAB [Concomitant]

REACTIONS (1)
  - Cardiac operation [None]

NARRATIVE: CASE EVENT DATE: 20181112
